FAERS Safety Report 24530173 (Version 1)
Quarter: 2024Q4

REPORT INFORMATION
  Report Type: Spontaneous
  Country: US (occurrence: None)
  Receive Date: 20241020
  Receipt Date: 20241020
  Transmission Date: 20250115
  Serious: No
  Sender: Public
  Company Number: None

PATIENT
  Sex: 0

DRUGS (4)
  1. WEGOVY [Suspect]
     Active Substance: SEMAGLUTIDE
     Indication: Weight decreased
     Dosage: OTHER QUANTITY : 1 INJECTION(S);?OTHER FREQUENCY : WEEKLY;?
     Route: 058
     Dates: start: 20241017
  2. WEGOVY [Suspect]
     Active Substance: SEMAGLUTIDE
     Indication: Glucose tolerance impaired
  3. WEGOVY [Suspect]
     Active Substance: SEMAGLUTIDE
     Indication: Myocardial infarction
  4. WEGOVY [Suspect]
     Active Substance: SEMAGLUTIDE
     Indication: Blood cholesterol

REACTIONS (10)
  - Anxiety [None]
  - Restlessness [None]
  - Hypertension [None]
  - Headache [None]
  - Confusional state [None]
  - Abdominal pain upper [None]
  - Constipation [None]
  - Diarrhoea [None]
  - Abdominal distension [None]
  - Fatigue [None]

NARRATIVE: CASE EVENT DATE: 20241017
